FAERS Safety Report 24153297 (Version 11)
Quarter: 2025Q2

REPORT INFORMATION
  Report Type: Spontaneous
  Country: US (occurrence: US)
  Receive Date: 20240730
  Receipt Date: 20250527
  Transmission Date: 20250717
  Serious: No
  Sender: PFIZER
  Company Number: US-PFIZER INC-202400223322

PATIENT
  Age: 14 Year
  Sex: Male
  Weight: 58.97 kg

DRUGS (1)
  1. GENOTROPIN [Suspect]
     Active Substance: SOMATROPIN
     Dosage: 2.2 MG, DAILY

REACTIONS (5)
  - Device use error [Unknown]
  - Poor quality device used [Unknown]
  - Device material issue [Unknown]
  - Device defective [Unknown]
  - Drug dose omission by device [Unknown]
